FAERS Safety Report 20872931 (Version 1)
Quarter: 2022Q2

REPORT INFORMATION
  Report Type: Spontaneous
  Country: US (occurrence: None)
  Receive Date: 20220524
  Receipt Date: 20220524
  Transmission Date: 20220721
  Serious: Yes (Hospitalization, Disabling)
  Sender: FDA-Public Use
  Company Number: None

PATIENT
  Age: 43 Year
  Sex: Female

DRUGS (14)
  1. ASTAGRAF XL [Suspect]
     Active Substance: TACROLIMUS
     Indication: Prophylaxis against transplant rejection
     Dosage: FREQUENCY : DAILY;?
     Route: 048
     Dates: start: 20180827, end: 20220519
  2. AMLODIPINE [Concomitant]
     Active Substance: AMLODIPINE BESYLATE
  3. CALCITRIOL [Concomitant]
     Active Substance: CALCITRIOL
  4. COREG [Concomitant]
     Active Substance: CARVEDILOL
  5. FOLIC ACID [Concomitant]
     Active Substance: FOLIC ACID
  6. LOSARTAN [Concomitant]
     Active Substance: LOSARTAN
  7. OMEGA-3 ACIDS [Concomitant]
     Active Substance: OMEGA-3 FATTY ACIDS
  8. OMEPRAZOLE [Concomitant]
     Active Substance: OMEPRAZOLE
  9. PREDNISONE [Concomitant]
     Active Substance: PREDNISONE
  10. RENVELA [Concomitant]
     Active Substance: SEVELAMER CARBONATE
  11. ROSUVASTATIN [Concomitant]
     Active Substance: ROSUVASTATIN
  12. SENSIPAR [Concomitant]
     Active Substance: CINACALCET HYDROCHLORIDE
  13. TRULICITY [Concomitant]
     Active Substance: DULAGLUTIDE
  14. VITAMIN D3 [Concomitant]
     Active Substance: CHOLECALCIFEROL

REACTIONS (4)
  - Blood urine present [None]
  - Complications of transplanted kidney [None]
  - Renal necrosis [None]
  - Removal of renal transplant [None]

NARRATIVE: CASE EVENT DATE: 20220519
